FAERS Safety Report 8681105 (Version 5)
Quarter: 2013Q4

REPORT INFORMATION
  Report Type: Spontaneous
  Country: US (occurrence: US)
  Receive Date: 20120724
  Receipt Date: 20131231
  Transmission Date: 20140711
  Serious: Yes (Hospitalization, Other)
  Sender: FDA-Public Use
  Company Number: US-009507513-1207USA004864

PATIENT
  Sex: Female
  Weight: 60.32 kg

DRUGS (8)
  1. FOSAMAX [Suspect]
     Indication: OSTEOPOROSIS
     Dosage: 10 MG, QD
     Route: 048
     Dates: start: 2003, end: 200802
  2. FOSAMAX [Suspect]
     Dosage: 70 MG, QD
     Route: 048
     Dates: start: 2003, end: 200802
  3. FOSAMAX [Suspect]
     Dosage: 10 MG, QD
     Route: 048
     Dates: start: 1998
  4. ALENDRONATE SODIUM [Suspect]
     Indication: OSTEOPOROSIS
     Dosage: 10 MG, QD
     Route: 048
     Dates: start: 20071217, end: 201008
  5. VITAMINS (UNSPECIFIED) [Concomitant]
     Dosage: ONE PILL DAILY
     Dates: start: 2003
  6. CALCIUM (UNSPECIFIED) [Concomitant]
     Dosage: 500 MG, BID
     Dates: start: 2002
  7. HYDROXYCHLOROQUINE SULFATE [Concomitant]
     Indication: SYSTEMIC LUPUS ERYTHEMATOSUS
     Dosage: UNK
     Dates: start: 1992
  8. CORTICOSTEROIDS (UNSPECIFIED) [Concomitant]
     Dosage: UNK
     Dates: start: 2000

REACTIONS (25)
  - Open reduction of fracture [Recovered/Resolved]
  - Tibia fracture [Recovering/Resolving]
  - Uterine dilation and curettage [Unknown]
  - Thyroid cancer [Unknown]
  - Thyroidectomy [Unknown]
  - Pancytopenia [Unknown]
  - Femur fracture [Recovered/Resolved]
  - Low turnover osteopathy [Unknown]
  - Limb injury [Unknown]
  - Blood count abnormal [Unknown]
  - Pain [Unknown]
  - Thyroid disorder [Unknown]
  - Arthritis [Unknown]
  - Hypertension [Unknown]
  - Thyroid neoplasm [Unknown]
  - Laceration [Recovering/Resolving]
  - Skin discolouration [Unknown]
  - Medical device complication [Unknown]
  - Skeletal injury [Unknown]
  - Soft tissue injury [Unknown]
  - Headache [Unknown]
  - Inappropriate schedule of drug administration [Unknown]
  - Gastrooesophageal reflux disease [Unknown]
  - Nausea [Unknown]
  - Vomiting [Unknown]
